FAERS Safety Report 10384893 (Version 1)
Quarter: 2014Q3

REPORT INFORMATION
  Report Type: Spontaneous
  Country: FR (occurrence: FR)
  Receive Date: 20140814
  Receipt Date: 20140814
  Transmission Date: 20150326
  Serious: Yes (Other)
  Sender: FDA-Public Use
  Company Number: FR-SA-2014SA106608

PATIENT
  Age: 25 Year
  Sex: Female

DRUGS (2)
  1. ZOLPIDEM TARTRATE. [Suspect]
     Active Substance: ZOLPIDEM TARTRATE
     Indication: OFF LABEL USE
     Route: 048
  2. LYSANXIA [Concomitant]
     Active Substance: PRAZEPAM

REACTIONS (4)
  - Victim of sexual abuse [Unknown]
  - Intentional product misuse [Unknown]
  - Memory impairment [Unknown]
  - Somnolence [Unknown]
